FAERS Safety Report 6335336-0 (Version None)
Quarter: 2009Q3

REPORT INFORMATION
  Report Type: 
  Country: None (occurrence: None)
  Receive Date: 20090827
  Receipt Date: 20090819
  Transmission Date: 20100115
  Serious: Yes (Death)
  Sender: FDA-Public Use
  Company Number: GXKR2009CO09416

PATIENT
  Sex: Female

DRUGS (1)
  1. SEROLUX (NGX) (SERTRALINE) UNKNOWN [Suspect]
     Dates: start: 20090130

REACTIONS (1)
  - RENAL FAILURE [None]
